FAERS Safety Report 8607535-6 (Version None)
Quarter: 2012Q3

REPORT INFORMATION
  Report Type: 
  Country: None (occurrence: None)
  Receive Date: 20120821
  Receipt Date: 20120813
  Transmission Date: 20120928
  Serious: Yes (Other)
  Sender: FDA-Public Use
  Company Number: US-JNJFOC-20120807112

PATIENT
  Sex: Male
  Weight: 92.99 kg

DRUGS (2)
  1. NUCYNTA ER [Suspect]
     Indication: BACK PAIN
     Dosage: TWICE DAY
     Route: 048
     Dates: start: 20120801
  2. NUCYNTA ER [Suspect]
     Indication: MUSCULOSKELETAL PAIN
     Dosage: TWICE DAY
     Route: 048
     Dates: start: 20120801

REACTIONS (4)
  - DRUG INEFFECTIVE [None]
  - DELIRIUM TREMENS [None]
  - UNDERDOSE [None]
  - FEELING JITTERY [None]
